FAERS Safety Report 19495075 (Version 1)
Quarter: 2021Q3

REPORT INFORMATION
  Report Type: Spontaneous
  Country: ES (occurrence: ES)
  Receive Date: 20210705
  Receipt Date: 20210705
  Transmission Date: 20211014
  Serious: Yes (Hospitalization)
  Sender: FDA-Public Use
  Company Number: ES-AUROBINDO-AUR-APL-2021-028010

PATIENT
  Age: 59 Year
  Sex: Male
  Weight: 64 kg

DRUGS (2)
  1. FUROSEMIDE. [Suspect]
     Active Substance: FUROSEMIDE
     Indication: CIRRHOSIS ALCOHOLIC
     Dosage: 40 MILLIGRAM, (40MG/24H)ONCE A DAY
     Route: 048
     Dates: start: 20191218
  2. AMERIDE (GLIMEPIRIDE) [Interacting]
     Active Substance: GLIMEPIRIDE
     Indication: CIRRHOSIS ALCOHOLIC
     Dosage: 1 DOSAGE FORM, ONCE A DAY1C/24H
     Route: 048
     Dates: start: 20200127

REACTIONS (1)
  - Hyponatraemia [Recovered/Resolved]

NARRATIVE: CASE EVENT DATE: 20200202
